FAERS Safety Report 24777559 (Version 1)
Quarter: 2024Q4

REPORT INFORMATION
  Report Type: Report from Study
  Country: GB (occurrence: GB)
  Receive Date: 20241226
  Receipt Date: 20241226
  Transmission Date: 20250115
  Serious: Yes (Other)
  Sender: BAXTER
  Company Number: GB-BAXTER-2024BAX029720

PATIENT
  Age: 65 Year
  Sex: Male

DRUGS (28)
  1. DEXTROSE [Suspect]
     Active Substance: DEXTROSE MONOHYDRATE
     Indication: Parenteral nutrition
     Dosage: UNSPECIFIED DOSE, DAILY IN TPN 4000 MLS OVER 16 HOURS
     Route: 065
     Dates: start: 20241216, end: 20241217
  2. DEXTROSE [Suspect]
     Active Substance: DEXTROSE MONOHYDRATE
     Indication: Functional gastrointestinal disorder
  3. WATER FOR INJECTION [Suspect]
     Active Substance: WATER
     Indication: Parenteral nutrition
     Dosage: [R], AT AN UNSPECIFIED DOSE, DAILY IN TPN 4000 MLS OVER 16 HOURS
     Route: 065
     Dates: start: 20241216, end: 20241217
  4. WATER FOR INJECTION [Suspect]
     Active Substance: WATER
     Indication: Functional gastrointestinal disorder
  5. OLIVE OIL\SOYBEAN OIL [Suspect]
     Active Substance: OLIVE OIL\SOYBEAN OIL
     Indication: Parenteral nutrition
     Dosage: AT AN UNSPECIFIED DOSE, DAILY IN TPN 4000 MLS OVER 16 HOURS
     Route: 065
     Dates: start: 20241216, end: 20241217
  6. OLIVE OIL\SOYBEAN OIL [Suspect]
     Active Substance: OLIVE OIL\SOYBEAN OIL
     Indication: Functional gastrointestinal disorder
  7. SYNTHAMIN [Suspect]
     Active Substance: AMINO ACIDS
     Indication: Parenteral nutrition
     Dosage: (EF), AT AN UNSPECIFIED DOSE, DAILY IN TPN 4000 MLS OVER 16 HOURS
     Route: 065
     Dates: start: 20241216, end: 20241217
  8. SYNTHAMIN [Suspect]
     Active Substance: AMINO ACIDS
     Indication: Functional gastrointestinal disorder
  9. CERNEVIT [Suspect]
     Active Substance: VITAMINS
     Indication: Parenteral nutrition
     Dosage: AT AN UNSPECIFIED DOSE, DAILY IN TPN 4000 MLS OVER 16 HOURS
     Route: 065
     Dates: start: 20241216, end: 20241217
  10. CERNEVIT [Suspect]
     Active Substance: VITAMINS
     Indication: Functional gastrointestinal disorder
  11. IRON\MINERALS\POTASSIUM IOD\SODIUM FLUORIDE\SODIUM MOLYBDATE\SODIUM SE [Suspect]
     Active Substance: IRON\MINERALS\POTASSIUM IOD\SODIUM FLUORIDE\SODIUM MOLYBDATE\SODIUM SELENITE\ZINC
     Indication: Parenteral nutrition
     Dosage: AT AN UNSPECIFIED DOSE, DAILY IN TPN 4000 MLS OVER 16 HOURS
     Route: 065
     Dates: start: 20241216, end: 20241217
  12. IRON\MINERALS\POTASSIUM IOD\SODIUM FLUORIDE\SODIUM MOLYBDATE\SODIUM SE [Suspect]
     Active Substance: IRON\MINERALS\POTASSIUM IOD\SODIUM FLUORIDE\SODIUM MOLYBDATE\SODIUM SELENITE\ZINC
     Indication: Functional gastrointestinal disorder
  13. WATER FOR INJECTION [Suspect]
     Active Substance: WATER
     Indication: Parenteral nutrition
     Dosage: [WATER FOR TPN FORMULATIONS], AT AN UNSPECIFIED DOSE, DAILY IN TPN 4000 MLS OVER 16 HOURS
     Route: 065
     Dates: start: 20241216, end: 20241217
  14. WATER FOR INJECTION [Suspect]
     Active Substance: WATER
     Indication: Functional gastrointestinal disorder
  15. SODIUM GLYCEROPHOSPHATE [Suspect]
     Active Substance: SODIUM GLYCEROPHOSPHATE
     Indication: Parenteral nutrition
     Dosage: (30%), AT AN UNSPECIFIED DOSE, DAILY IN TPN 4000 MLS OVER 16 HOURS
     Route: 065
     Dates: start: 20241216, end: 20241217
  16. SODIUM GLYCEROPHOSPHATE [Suspect]
     Active Substance: SODIUM GLYCEROPHOSPHATE
     Indication: Functional gastrointestinal disorder
  17. SODIUM CHLORIDE [Suspect]
     Active Substance: SODIUM CHLORIDE
     Indication: Parenteral nutrition
     Dosage: (23.5%), AT AN UNSPECIFIED DOSE, DAILY IN TPN 4000 MLS OVER 16 HOURS
     Route: 065
     Dates: start: 20241216, end: 20241217
  18. SODIUM CHLORIDE [Suspect]
     Active Substance: SODIUM CHLORIDE
     Indication: Functional gastrointestinal disorder
  19. SODIUM ACETATE [Suspect]
     Active Substance: SODIUM ACETATE
     Indication: Parenteral nutrition
     Dosage: AT AN UNSPECIFIED DOSE, DAILY IN TPN 4000 MLS OVER 16 HOURS
     Route: 065
     Dates: start: 20241216, end: 20241217
  20. SODIUM ACETATE [Suspect]
     Active Substance: SODIUM ACETATE
     Indication: Functional gastrointestinal disorder
  21. POTASSIUM ACETATE [Suspect]
     Active Substance: POTASSIUM ACETATE
     Indication: Parenteral nutrition
     Dosage: AT AN UNSPECIFIED DOSE, DAILY IN TPN 4000 MLS OVER 16 HOURS
     Route: 065
     Dates: start: 20241216, end: 20241217
  22. POTASSIUM ACETATE [Suspect]
     Active Substance: POTASSIUM ACETATE
     Indication: Functional gastrointestinal disorder
  23. MAGNESIUM SULFATE [Suspect]
     Active Substance: MAGNESIUM SULFATE
     Indication: Parenteral nutrition
     Dosage: (BAG), AT AN UNSPECIFIED DOSE, DAILY IN TPN 4000 MLS OVER 16 HOURS
     Route: 065
     Dates: start: 20241216, end: 20241217
  24. MAGNESIUM SULFATE [Suspect]
     Active Substance: MAGNESIUM SULFATE
     Indication: Functional gastrointestinal disorder
  25. CALCIUM CHLORIDE [Suspect]
     Active Substance: CALCIUM CHLORIDE
     Indication: Parenteral nutrition
     Dosage: AT AN UNSPECIFIED DOSE, DAILY IN TPN 4000 MLS OVER 16 HOURS
     Route: 065
     Dates: start: 20241216, end: 20241217
  26. CALCIUM CHLORIDE [Suspect]
     Active Substance: CALCIUM CHLORIDE
     Indication: Functional gastrointestinal disorder
  27. UNSPECIFIED INGREDIENT [Suspect]
     Active Substance: UNSPECIFIED INGREDIENT
     Route: 065
  28. PANTOPRAZOLE [Concomitant]
     Active Substance: PANTOPRAZOLE
     Route: 065

REACTIONS (3)
  - Mass [Not Recovered/Not Resolved]
  - Contusion [Not Recovered/Not Resolved]
  - Feeling hot [Not Recovered/Not Resolved]

NARRATIVE: CASE EVENT DATE: 20241217
